FAERS Safety Report 20263613 (Version 11)
Quarter: 2024Q2

REPORT INFORMATION
  Report Type: Report from Study
  Country: US (occurrence: US)
  Receive Date: 20211231
  Receipt Date: 20240424
  Transmission Date: 20240716
  Serious: Yes (Hospitalization, Other)
  Sender: FDA-Public Use
  Company Number: US-NOVARTISPH-NVSC2021US299447

PATIENT
  Sex: Female

DRUGS (1)
  1. GILENYA [Suspect]
     Active Substance: FINGOLIMOD HYDROCHLORIDE
     Indication: Product used for unknown indication
     Dosage: 0.5 MG
     Route: 048

REACTIONS (9)
  - Multiple fractures [Unknown]
  - Lower limb fracture [Unknown]
  - Fall [Unknown]
  - Deafness [Unknown]
  - Multiple sclerosis [Unknown]
  - Illness [Unknown]
  - Hypoacusis [Unknown]
  - Product dose omission issue [Unknown]
  - Fatigue [Unknown]
